FAERS Safety Report 20838493 (Version 1)
Quarter: 2022Q2

REPORT INFORMATION
  Report Type: Spontaneous
  Country: US (occurrence: US)
  Receive Date: 20220517
  Receipt Date: 20220517
  Transmission Date: 20220721
  Serious: No
  Sender: FDA-Public Use
  Company Number: US-BAUSCH-BL-2022-011536

PATIENT
  Sex: Male

DRUGS (2)
  1. EYE ITCH RELIEF [Suspect]
     Active Substance: KETOTIFEN FUMARATE
     Indication: Ocular hyperaemia
     Dosage: DROPS ABOUT 4-5 TIMES TODAY
     Route: 065
  2. EYE ITCH RELIEF [Suspect]
     Active Substance: KETOTIFEN FUMARATE
     Indication: Eye pruritus

REACTIONS (3)
  - Instillation site erythema [Unknown]
  - Condition aggravated [Unknown]
  - Inappropriate schedule of product administration [Unknown]
